FAERS Safety Report 8241542-0 (Version None)
Quarter: 2012Q1

REPORT INFORMATION
  Report Type: 
  Country: None (occurrence: None)
  Receive Date: 20120328
  Receipt Date: 20120111
  Transmission Date: 20120608
  Serious: No
  Sender: FDA-Public Use
  Company Number: US-COVIDIEN/TYCO HEALTHCARE/MALLINCKRODT-T201200450

PATIENT
  Sex: Male
  Weight: 95.238 kg

DRUGS (1)
  1. METHADOSE [Suspect]
     Indication: DRUG ABUSE
     Dosage: 105 MG, QD
     Dates: start: 20020101

REACTIONS (2)
  - RASH MACULO-PAPULAR [None]
  - EXCORIATION [None]
